FAERS Safety Report 9780994 (Version 2)
Quarter: 2014Q1

REPORT INFORMATION
  Report Type: Spontaneous
  Country: US (occurrence: None)
  Receive Date: 20131220
  Receipt Date: 20140102
  Transmission Date: 20141002
  Serious: Yes (Death, Other)
  Sender: FDA-Public Use
  Company Number: AMAG201300236

PATIENT
  Age: 76 Year
  Sex: Male
  Weight: 102 kg

DRUGS (14)
  1. FERAHEME [Suspect]
     Indication: ANAEMIA
     Dosage: 1.5ML, (45MG) SINGLE INTRAVENOUS
     Route: 042
     Dates: start: 20131210, end: 20131210
  2. FERAHEME [Suspect]
     Indication: RENAL FAILURE CHRONIC
     Dosage: 1.5ML, (45MG) SINGLE INTRAVENOUS
     Route: 042
     Dates: start: 20131210, end: 20131210
  3. LEXAPRO (ESCITALOPRAM OXALATE) [Concomitant]
  4. ZESTRIL [Concomitant]
  5. COREG [Concomitant]
  6. PROBIOTIC [Concomitant]
  7. MULTIVITAMIN [Concomitant]
  8. FISH OIL (FISH OIL) [Concomitant]
  9. VITAMIN B6 (VITAMIN B6) [Concomitant]
  10. VITAMIN E (TOCOPHERYL ACETATE) [Concomitant]
  11. VITAMIN C (ASCORBIC ACID) [Concomitant]
  12. VITAMIN B1 (THIAMINE HYDROCHLORIDE) [Concomitant]
  13. VITAMIN B12 (HYDROXOCOBALAMIN) [Concomitant]
  14. CALCIUM (CALCIUM CARBONATE) [Concomitant]

REACTIONS (17)
  - Pulmonary embolism [None]
  - Cardio-respiratory arrest [None]
  - Cyanosis [None]
  - Unresponsive to stimuli [None]
  - Chest discomfort [None]
  - Swelling face [None]
  - Anxiety [None]
  - Aggression [None]
  - Incontinence [None]
  - Wheezing [None]
  - Cerebral infarction [None]
  - Brain oedema [None]
  - Renal failure acute [None]
  - Metabolic acidosis [None]
  - Pneumonia aspiration [None]
  - Pneumonia aspiration [None]
  - Brain death [None]
